FAERS Safety Report 22126359 (Version 3)
Quarter: 2023Q1

REPORT INFORMATION
  Report Type: Spontaneous
  Country: US (occurrence: US)
  Receive Date: 20230322
  Receipt Date: 20230322
  Transmission Date: 20230418
  Serious: No
  Sender: FDA-Public Use
  Company Number: US-ALLERGAN-2300986US

PATIENT
  Age: 56 Year
  Sex: Female
  Weight: 145.14 kg

DRUGS (3)
  1. LATISSE [Suspect]
     Active Substance: BIMATOPROST
     Indication: Growth of eyelashes
     Dosage: UNK, QD, NIGHT
     Dates: start: 20230101, end: 20230103
  2. LATISSE [Suspect]
     Active Substance: BIMATOPROST
     Indication: Growth of eyelashes
     Dosage: UNK, QD
     Dates: start: 20230106, end: 20230108
  3. LATISSE [Suspect]
     Active Substance: BIMATOPROST
     Indication: Growth of eyelashes
     Dosage: UNK, QD
     Dates: start: 20230110, end: 20230112

REACTIONS (3)
  - Eyelid irritation [Not Recovered/Not Resolved]
  - Swelling of eyelid [Not Recovered/Not Resolved]
  - Lacrimation increased [Not Recovered/Not Resolved]

NARRATIVE: CASE EVENT DATE: 20230101
